FAERS Safety Report 24407998 (Version 1)
Quarter: 2024Q4

REPORT INFORMATION
  Report Type: Spontaneous
  Country: US (occurrence: US)
  Receive Date: 20241007
  Receipt Date: 20241007
  Transmission Date: 20250114
  Serious: Yes (Life-Threatening, Hospitalization, Other)
  Sender: AMGEN
  Company Number: US-AMGEN-USASP2024193641

PATIENT
  Age: 57 Year

DRUGS (1)
  1. PREDNISONE [Suspect]
     Active Substance: PREDNISONE
     Indication: Focal segmental glomerulosclerosis
     Dosage: UNK
     Route: 065

REACTIONS (6)
  - Sepsis [Unknown]
  - Meningitis enterococcal [Unknown]
  - Disseminated strongyloidiasis [Unknown]
  - Enterococcal bacteraemia [Unknown]
  - Unevaluable event [Unknown]
  - Immunodeficiency [Unknown]
